FAERS Safety Report 8325236-9 (Version None)
Quarter: 2012Q1

REPORT INFORMATION
  Report Type: 
  Country: None (occurrence: None)
  Receive Date: 20120315
  Receipt Date: 20101129
  Transmission Date: 20120608
  Serious: No
  Sender: FDA-Public Use
  Company Number: PHHY2010US78356

PATIENT
  Age: 58 Year
  Sex: Female

DRUGS (3)
  1. ACETAMINOPHEN [Concomitant]
  2. GILENYA [Suspect]
     Indication: MULTIPLE SCLEROSIS
     Dosage: 0.5 MG QD, ORAL
     Route: 048
     Dates: start: 20101105
  3. LISINOPRIL [Concomitant]

REACTIONS (1)
  - HEADACHE [None]
